FAERS Safety Report 8561150-1 (Version None)
Quarter: 2012Q3

REPORT INFORMATION
  Report Type: 
  Country: None (occurrence: None)
  Receive Date: 20120802
  Receipt Date: 20120608
  Transmission Date: 20120928
  Serious: Yes (Hospitalization)
  Sender: FDA-Public Use
  Company Number: PE-ELI_LILLY_AND_COMPANY-PE201207009343

PATIENT
  Age: 61 Year
  Sex: Male

DRUGS (2)
  1. HUMULIN R [Suspect]
     Dosage: UNK, UNKNOWN
  2. HUMULIN N [Suspect]

REACTIONS (2)
  - DRUG DOSE OMISSION [None]
  - ILL-DEFINED DISORDER [None]
